FAERS Safety Report 19463224 (Version 2)
Quarter: 2022Q3

REPORT INFORMATION
  Report Type: Report from Study
  Country: CA (occurrence: CA)
  Receive Date: 20210625
  Receipt Date: 20220704
  Transmission Date: 20221027
  Serious: Yes (Hospitalization)
  Sender: FDA-Public Use
  Company Number: CA-GSKJP-CA2018GSK189238AA

PATIENT

DRUGS (5)
  1. FLUTICASONE PROPIONATE\SALMETEROL XINAFOATE [Suspect]
     Active Substance: FLUTICASONE PROPIONATE\SALMETEROL XINAFOATE
     Indication: Product used for unknown indication
     Dosage: 1 PUFF(S), BID; 250 MCG
     Dates: start: 201201, end: 201501
  2. NUCALA [Suspect]
     Active Substance: MEPOLIZUMAB
     Indication: Asthma
     Dosage: 100 MG, Z; (MONTHLY)
     Route: 042
     Dates: start: 20181128
  3. NUCALA [Suspect]
     Active Substance: MEPOLIZUMAB
     Dosage: 100 MG, Z; MONTHLY
     Route: 042
  4. SINGULAIR [Suspect]
     Active Substance: MONTELUKAST SODIUM
     Indication: Asthma
     Dosage: 10 MG
  5. ALVESCO [Suspect]
     Active Substance: CICLESONIDE
     Indication: Asthma
     Dosage: 2 PUFF(S); ONCE A DAY

REACTIONS (10)
  - Asthma [Unknown]
  - Full blood count abnormal [Unknown]
  - Weight increased [Unknown]
  - Obstructive airways disorder [Unknown]
  - Restrictive pulmonary disease [Unknown]
  - Lung diffusion test decreased [Unknown]
  - Cardiac disorder [Unknown]
  - Epistaxis [Unknown]
  - Therapeutic product effect incomplete [Unknown]
  - Hospitalisation [Unknown]
